FAERS Safety Report 13000041 (Version 2)
Quarter: 2016Q4

REPORT INFORMATION
  Report Type: Spontaneous
  Country: US (occurrence: US)
  Receive Date: 20161205
  Receipt Date: 20161205
  Transmission Date: 20170207
  Serious: No
  Sender: FDA-Public Use
  Company Number: US-ASTRAZENECA-2016SF18470

PATIENT
  Sex: Female

DRUGS (2)
  1. ROSUVASTATIN. [Suspect]
     Active Substance: ROSUVASTATIN
     Dosage: GENERIC ROSUVASTATIN, DOSING UNKNOWN
     Route: 048
  2. ROSUVASTATIN. [Suspect]
     Active Substance: ROSUVASTATIN
     Dosage: DOSING UNKNOWN
     Route: 048

REACTIONS (2)
  - Drug hypersensitivity [Unknown]
  - Fatigue [Unknown]
